FAERS Safety Report 4528057-8 (Version None)
Quarter: 2004Q4

REPORT INFORMATION
  Report Type: 
  Country: None (occurrence: None)
  Receive Date: 20041123
  Receipt Date: 20040525
  Transmission Date: 20050328
  Serious: Yes (Hospitalization)
  Sender: FDA-Public Use
  Company Number: 2004034707

PATIENT
  Sex: Female

DRUGS (10)
  1. LIPITOR [Suspect]
     Indication: ILL-DEFINED DISORDER
     Dosage: 40 MG (1 IN 1 D), ORAL
     Route: 048
  2. ATENOLOL [Suspect]
     Indication: ILL-DEFINED DISORDER
     Dosage: 50 MG (1 IN 1 D), UNKNOWN
     Dates: start: 19991230
  3. HYDROCHLOROTHIAZIDE [Suspect]
     Indication: ILL-DEFINED DISORDER
     Dosage: 25 MG (1 IN 1 D), UNKNOWN
     Dates: start: 20000224
  4. DIGOXIN [Suspect]
     Indication: ILL-DEFINED DISORDER
     Dosage: 0.125 MG (1 IN 1 D), ORAL
     Route: 048
  5. CLOPIDOGREL BISULFATE [Suspect]
     Indication: ILL-DEFINED DISORDER
     Dosage: 75 MG (1 IN 1 D), ORAL
     Route: 048
  6. ISOSORBIDE (ISOSORBIDE) [Suspect]
     Indication: ILL-DEFINED DISORDER
     Dosage: 40 MG (1 IN 1 D), ORAL
     Route: 048
  7. PIOGLITAZONE HCL [Concomitant]
  8. TRIAMCINOLONE ACETONIDE [Concomitant]
  9. SALBUTAMOL (SALBUTAMOL) [Concomitant]
  10. ISOPHANE INSULIN [Concomitant]

REACTIONS (5)
  - ASTHENIA [None]
  - BLOOD PRESSURE INCREASED [None]
  - DIZZINESS [None]
  - HEADACHE [None]
  - RESPIRATORY RATE INCREASED [None]
